FAERS Safety Report 15130043 (Version 2)
Quarter: 2018Q3

REPORT INFORMATION
  Report Type: Spontaneous
  Country: PL (occurrence: PL)
  Receive Date: 20180711
  Receipt Date: 20180806
  Transmission Date: 20181010
  Serious: Yes (Hospitalization, Other)
  Sender: FDA-Public Use
  Company Number: PHHY2018PL034534

PATIENT
  Age: 72 Year
  Sex: Female

DRUGS (3)
  1. VOTRIENT [Suspect]
     Active Substance: PAZOPANIB HYDROCHLORIDE
     Dosage: 600 MG, QD
     Route: 065
  2. VOTRIENT [Suspect]
     Active Substance: PAZOPANIB HYDROCHLORIDE
     Dosage: 400 MG, QD
     Route: 065
     Dates: end: 201805
  3. VOTRIENT [Suspect]
     Active Substance: PAZOPANIB HYDROCHLORIDE
     Indication: RENAL CELL CARCINOMA
     Dosage: 800 MG, QD
     Route: 048
     Dates: start: 20170123

REACTIONS (23)
  - Hypotension [Unknown]
  - Traumatic lung injury [Unknown]
  - Platelet count decreased [Recovering/Resolving]
  - Hyponatraemia [Unknown]
  - Blood pressure increased [Unknown]
  - Concomitant disease aggravated [Unknown]
  - Anaemia [Unknown]
  - Electrolyte imbalance [Unknown]
  - Vomiting [Recovered/Resolved]
  - Diarrhoea [Recovered/Resolved]
  - Decreased appetite [Unknown]
  - Dyspnoea exertional [Unknown]
  - Blood urea increased [Unknown]
  - Epistaxis [Unknown]
  - Blood creatinine increased [Unknown]
  - Weight decreased [Recovered/Resolved]
  - Loss of consciousness [Unknown]
  - Dehydration [Recovering/Resolving]
  - Hepatomegaly [Unknown]
  - Alanine aminotransferase increased [Unknown]
  - Asthenia [Recovering/Resolving]
  - Fatigue [Unknown]
  - Aspartate aminotransferase increased [Unknown]

NARRATIVE: CASE EVENT DATE: 201702
